FAERS Safety Report 9631050 (Version 1)
Quarter: 2013Q4

REPORT INFORMATION
  Report Type: Spontaneous
  Country: US (occurrence: None)
  Receive Date: 20131016
  Receipt Date: 20131016
  Transmission Date: 20140711
  Serious: Yes (Hospitalization)
  Sender: FDA-Public Use
  Company Number: 2013--US-001668

PATIENT
  Age: 72 Year
  Sex: Male

DRUGS (1)
  1. XYREM (SODIUM OXYBATE) ORAL SOLUTION, 500 MG/ML [Suspect]
     Indication: INSOMNIA
     Route: 048
     Dates: start: 200603, end: 200607

REACTIONS (4)
  - Hospitalisation [None]
  - Rotator cuff syndrome [None]
  - Laceration [None]
  - Fall [None]
